FAERS Safety Report 5341989-6 (Version None)
Quarter: 2007Q2

REPORT INFORMATION
  Report Type: 
  Country: None (occurrence: None)
  Receive Date: 20070530
  Receipt Date: 20070530
  Transmission Date: 20071010
  Serious: Yes (Hospitalization)
  Sender: FDA-Public Use
  Company Number: None

PATIENT
  Sex: Male
  Weight: 84.1 kg

DRUGS (1)
  1. PURITAN PRIDE VITA-MIN PURITAN PRIDE INC OAKDALE NY 11769 [Suspect]
     Indication: VITAMIN SUPPLEMENTATION
     Dosage: 1 TABLET QD PO
     Route: 048
     Dates: start: 20070510, end: 20070514

REACTIONS (2)
  - BODY TEMPERATURE INCREASED [None]
  - INFECTION [None]
